FAERS Safety Report 24290777 (Version 1)
Quarter: 2024Q3

REPORT INFORMATION
  Report Type: Spontaneous
  Country: GB (occurrence: GB)
  Receive Date: 20240906
  Receipt Date: 20240906
  Transmission Date: 20241016
  Serious: Yes (Life-Threatening, Hospitalization, Other)
  Sender: DR REDDYS
  Company Number: None

PATIENT
  Age: 66 Year
  Sex: Female

DRUGS (3)
  1. CLOPIDOGREL [Suspect]
     Active Substance: CLOPIDOGREL BISULFATE
     Indication: Peripheral vascular disorder
     Dosage: 75MG OD
  2. ATORVASTATIN [Concomitant]
     Active Substance: ATORVASTATIN
     Indication: Blood cholesterol
     Dosage: ATORVASTATIN 20 MG TABLETS ONE TO BE TAKEN EACH DAY
  3. ATORVASTATIN [Concomitant]
     Active Substance: ATORVASTATIN
     Dosage: ATORVASTATIN 40 MG TABLETS ONE TO BE TAKEN EACH DAY?TOTAL DOSE: 60 MG

REACTIONS (1)
  - Subarachnoid haematoma [Unknown]

NARRATIVE: CASE EVENT DATE: 20240824
